FAERS Safety Report 23283911 (Version 1)
Quarter: 2023Q4

REPORT INFORMATION
  Report Type: Spontaneous
  Country: US (occurrence: US)
  Receive Date: 20231211
  Receipt Date: 20231211
  Transmission Date: 20240110
  Serious: No
  Sender: FDA-Public Use
  Company Number: US-LEO Pharma-365790

PATIENT
  Sex: Male

DRUGS (1)
  1. ADBRY [Suspect]
     Active Substance: TRALOKINUMAB-LDRM
     Indication: Product used for unknown indication
     Dosage: PATIENT RECEIVED A FULL LOADING DOSE OF ADBRY?. PATIENT WAS DUE FOR THE MAINTENANCE DOSE ON 01-DEC-2

REACTIONS (1)
  - Dermatitis [Unknown]
